FAERS Safety Report 17241216 (Version 1)
Quarter: 2020Q1

REPORT INFORMATION
  Report Type: Spontaneous
  Country: US (occurrence: US)
  Receive Date: 20200107
  Receipt Date: 20200107
  Transmission Date: 20200409
  Serious: Yes (Other)
  Sender: FDA-Public Use
  Company Number: US-ROCHE-2493515

PATIENT
  Sex: Male
  Weight: 89.89 kg

DRUGS (12)
  1. HUMIRA [Concomitant]
     Active Substance: ADALIMUMAB
     Route: 065
  2. BRIMONIDINE [Concomitant]
     Active Substance: BRIMONIDINE TARTRATE
     Dosage: 1 DROP THREE TIMES A DAY IN BOTH EYES
     Route: 031
     Dates: start: 20191023
  3. AMITRIPTYLINE [Concomitant]
     Active Substance: AMITRIPTYLINE
     Route: 048
  4. AVASTIN [Suspect]
     Active Substance: BEVACIZUMAB
     Indication: RETINAL OEDEMA
  5. HUMALOG [Concomitant]
     Active Substance: INSULIN LISPRO
     Dosage: 20 UNITS THREE TIMES A DAY WITH MEALS ;ONGOING: YES
     Route: 065
  6. LANTUS [Concomitant]
     Active Substance: INSULIN GLARGINE
     Dosage: 30 UNITS ONCE DAILY AT NIGHT ;ONGOING: YES
     Route: 065
  7. AVASTIN [Suspect]
     Active Substance: BEVACIZUMAB
     Indication: DIABETIC RETINAL OEDEMA
  8. FUROSEMIDE. [Concomitant]
     Active Substance: FUROSEMIDE
     Route: 048
  9. METHOTREXATE. [Concomitant]
     Active Substance: METHOTREXATE
     Route: 048
  10. AVASTIN [Suspect]
     Active Substance: BEVACIZUMAB
     Indication: HAEMORRHAGE
     Route: 050
     Dates: start: 20190108
  11. AVASTIN [Suspect]
     Active Substance: BEVACIZUMAB
     Indication: OCULAR VASCULAR DISORDER
     Dosage: ONGOING:NO
     Route: 050
     Dates: start: 201902, end: 20191118
  12. ATORVASTATIN [Concomitant]
     Active Substance: ATORVASTATIN
     Indication: BLOOD CHOLESTEROL
     Route: 048

REACTIONS (4)
  - Otorrhoea [Not Recovered/Not Resolved]
  - Intentional product use issue [Unknown]
  - Deafness [Not Recovered/Not Resolved]
  - Off label use [Unknown]
